FAERS Safety Report 6096567-0 (Version None)
Quarter: 2009Q1

REPORT INFORMATION
  Report Type: 
  Country: None (occurrence: None)
  Receive Date: 20090227
  Receipt Date: 20090217
  Transmission Date: 20090719
  Serious: Yes (Death, Life-Threatening)
  Sender: FDA-Public Use
  Company Number: US-PURDUE-USA_2006_0024037

PATIENT
  Age: 43 Year
  Sex: Female
  Weight: 123 kg

DRUGS (7)
  1. OXYCONTIN [Suspect]
     Indication: ARTHRITIS
     Dosage: 80 MG, TID
     Dates: start: 20040420
  2. WELLBUTRIN [Concomitant]
     Indication: DEPRESSION
     Dosage: 150 MG, DAILY
  3. NEURONTIN [Concomitant]
     Indication: PAIN IN EXTREMITY
     Dosage: 800 MG, TID
  4. NORTRIPTYLINE HCL [Concomitant]
     Indication: DEPRESSION
     Dosage: 100 MG, HS
  5. PREVACID [Concomitant]
     Indication: GASTROOESOPHAGEAL REFLUX DISEASE
     Dosage: 30 MG, DAILY
  6. QUININE [Concomitant]
     Indication: MUSCLE SPASMS
     Dosage: 5 GRAIN, SEE TEXT
  7. AMITRIPTYLINE [Concomitant]
     Indication: DEPRESSION
     Dosage: UNK, UNK

REACTIONS (6)
  - DEATH [None]
  - DEPRESSION [None]
  - DYSARTHRIA [None]
  - PAIN [None]
  - SWELLING [None]
  - WEIGHT INCREASED [None]
